FAERS Safety Report 15882340 (Version 3)
Quarter: 2019Q2

REPORT INFORMATION
  Report Type: Report from Study
  Country: GB (occurrence: GB)
  Receive Date: 20190129
  Receipt Date: 20190414
  Transmission Date: 20190711
  Serious: Yes (Death, Hospitalization)
  Sender: FDA-Public Use
  Company Number: GB-AMGEN-GBRNI2019012849

PATIENT
  Age: 75 Year
  Sex: Female

DRUGS (1)
  1. ETANERCEPT [Suspect]
     Active Substance: ETANERCEPT
     Indication: RHEUMATOID ARTHRITIS
     Dosage: UNK
     Route: 058
     Dates: start: 20130615, end: 20130715

REACTIONS (7)
  - Gastrointestinal haemorrhage [Fatal]
  - Cardiac failure chronic [Fatal]
  - Hypotension [Fatal]
  - Urine output decreased [Fatal]
  - Lower respiratory tract infection [Fatal]
  - Unresponsive to stimuli [Fatal]
  - Hypophagia [Fatal]

NARRATIVE: CASE EVENT DATE: 20180110
